FAERS Safety Report 11633330 (Version 2)
Quarter: 2015Q4

REPORT INFORMATION
  Report Type: Spontaneous
  Country: FR (occurrence: FR)
  Receive Date: 20151015
  Receipt Date: 20151106
  Transmission Date: 20160304
  Serious: Yes (Other)
  Sender: FDA-Public Use
  Company Number: FR-PFIZER INC-2015336994

PATIENT
  Age: 63 Year
  Sex: Male

DRUGS (1)
  1. METHYLPREDNISOLONE SODIUM SUCCINATE. [Suspect]
     Active Substance: METHYLPREDNISOLONE SODIUM SUCCINATE
     Indication: MYOPATHY
     Dosage: 1 G, UNK
     Route: 042

REACTIONS (4)
  - Fluid retention [Unknown]
  - Condition aggravated [Recovered/Resolved]
  - Paraparesis [Recovering/Resolving]
  - Dural arteriovenous fistula [Recovered/Resolved]
